FAERS Safety Report 9501512 (Version 1)
Quarter: 2013Q3

REPORT INFORMATION
  Report Type: Spontaneous
  Country: JP (occurrence: JP)
  Receive Date: 20130905
  Receipt Date: 20130905
  Transmission Date: 20140515
  Serious: Yes (Other)
  Sender: FDA-Public Use
  Company Number: JP-PFIZER INC-2013255713

PATIENT
  Age: 80 Year
  Sex: Female

DRUGS (4)
  1. CELECOX [Suspect]
     Indication: RHEUMATOID ARTHRITIS
     Dosage: 400 MG, DAILY
     Route: 048
  2. PROGRAF [Suspect]
     Indication: RHEUMATOID ARTHRITIS
     Dosage: 2 MG, DAILY
     Route: 048
     Dates: end: 20130823
  3. FOSAMAC [Concomitant]
     Dosage: UNK
  4. PREDONINE [Concomitant]
     Dosage: UNK

REACTIONS (1)
  - Interstitial lung disease [Unknown]
